FAERS Safety Report 4324633-6 (Version None)
Quarter: 2004Q1

REPORT INFORMATION
  Report Type: 
  Country: None (occurrence: None)
  Receive Date: 20040322
  Receipt Date: 20040309
  Transmission Date: 20041129
  Serious: Yes (Hospitalization, Other)
  Sender: FDA-Public Use
  Company Number: 200410126BFR

PATIENT
  Age: 34 Year
  Sex: Male

DRUGS (14)
  1. CIPROFLOXACIN [Suspect]
     Indication: SEPSIS
     Dosage: INTRAVENOUS
     Route: 042
     Dates: start: 20040128, end: 20040130
  2. AUGMENTIN [Suspect]
     Dates: start: 20040118, end: 20040128
  3. CEFTAZIDIME PENTAHYDRATE [Suspect]
     Indication: SEPSIS
     Dates: start: 20040128, end: 20040203
  4. EUPRESSYL (URAPIDIL) [Concomitant]
  5. ACETAMINOPHEN [Suspect]
  6. OXACILLIN [Suspect]
     Indication: SEPSIS
     Dosage: INTRAVENOUS
     Route: 042
     Dates: start: 20040206, end: 20040208
  7. ERYTHROMYCINE (ERYTHROMYCIN) [Suspect]
     Dosage: INTRAVENOUS
     Route: 042
     Dates: start: 20040118, end: 20040123
  8. BURINEX [Concomitant]
  9. SUFENTA [Concomitant]
  10. MIDAZOLAM HCL [Concomitant]
  11. ALBUTEROL SULFATE [Concomitant]
  12. BRICANYL [Concomitant]
  13. HELIOX [Concomitant]
  14. PRIMAXIN [Concomitant]

REACTIONS (5)
  - AGRANULOCYTOSIS [None]
  - BACTERIAL SEPSIS [None]
  - DERMATITIS BULLOUS [None]
  - KLEBSIELLA SEPSIS [None]
  - NIKOLSKY'S SIGN [None]
